FAERS Safety Report 4279565-9 (Version None)
Quarter: 2004Q1

REPORT INFORMATION
  Report Type: 
  Country: None (occurrence: None)
  Receive Date: 20040123
  Receipt Date: 20040120
  Transmission Date: 20041129
  Serious: Yes (Hospitalization)
  Sender: FDA-Public Use
  Company Number: 2004-00220

PATIENT
  Age: 73 Year
  Sex: Male

DRUGS (6)
  1. DICLOFENAC (WATSON LABORATORIES) (DICLOFENAC POTASSIUM) TABLET, 50 MG [Suspect]
     Indication: BACK PAIN
     Dosage: 75 MG DAILY INTRAVENOUS
     Route: 042
  2. BAYCOL [Suspect]
     Dosage: 0.4 MG DAILY ORAL
     Route: 048
  3. ASPIRIN [Concomitant]
  4. AMLODIPINE MALEATE (AMLODIPINE MALEATE) [Concomitant]
  5. PROPRANLOL (PROPRANOLOL) [Concomitant]
  6. LOSARTAN (LOSARTAN) [Concomitant]

REACTIONS (2)
  - DRUG INTERACTION [None]
  - RHABDOMYOLYSIS [None]
